FAERS Safety Report 25714664 (Version 2)
Quarter: 2025Q3

REPORT INFORMATION
  Report Type: Spontaneous
  Country: AR (occurrence: AR)
  Receive Date: 20250822
  Receipt Date: 20250910
  Transmission Date: 20251020
  Serious: Yes (Other)
  Sender: ORGANON
  Company Number: AR-ORGANON-O2508ARG001717

PATIENT
  Age: 25 Year
  Sex: Female
  Weight: 90 kg

DRUGS (2)
  1. ETONOGESTREL [Suspect]
     Active Substance: ETONOGESTREL
     Indication: Contraception
     Route: 059
     Dates: start: 20230320, end: 2025
  2. ETONOGESTREL [Concomitant]
     Active Substance: ETONOGESTREL
     Route: 059

REACTIONS (2)
  - Pregnancy with implant contraceptive [Not Recovered/Not Resolved]
  - Unintended pregnancy [Not Recovered/Not Resolved]

NARRATIVE: CASE EVENT DATE: 20250101
